FAERS Safety Report 4632466-6 (Version None)
Quarter: 2005Q2

REPORT INFORMATION
  Report Type: 
  Country: None (occurrence: None)
  Receive Date: 20050411
  Receipt Date: 20050330
  Transmission Date: 20051028
  Serious: Yes (Hospitalization)
  Sender: FDA-Public Use
  Company Number: FR-JNJFOC-20050307358

PATIENT
  Sex: Male
  Weight: 75 kg

DRUGS (4)
  1. RISPERDAL [Suspect]
     Route: 049
     Dates: start: 20040518
  2. LYSANXIA [Suspect]
     Route: 049
  3. AKINETON [Suspect]
     Dosage: 1TABLET PER DAY
     Route: 049
  4. STILNOX [Suspect]
     Route: 049

REACTIONS (2)
  - ANAEMIA [None]
  - GASTROINTESTINAL HAEMORRHAGE [None]
